FAERS Safety Report 17415828 (Version 2)
Quarter: 2020Q1

REPORT INFORMATION
  Report Type: Report from Study
  Country: US (occurrence: US)
  Receive Date: 20200213
  Receipt Date: 20200221
  Transmission Date: 20200409
  Serious: Yes (Death)
  Sender: FDA-Public Use
  Company Number: US-ACTELION-A-NJ2019-187273

PATIENT
  Age: 64 Year
  Sex: Female
  Weight: 40.82 kg

DRUGS (2)
  1. ELIQUIS [Concomitant]
     Active Substance: APIXABAN
  2. OPSUMIT [Suspect]
     Active Substance: MACITENTAN
     Indication: PULMONARY ARTERIAL HYPERTENSION
     Dosage: 10 MG, QD
     Route: 048

REACTIONS (7)
  - Death [Fatal]
  - Oedema peripheral [Unknown]
  - Pain [Unknown]
  - Malaise [Unknown]
  - Arthralgia [Recovering/Resolving]
  - Systemic lupus erythematosus [Unknown]
  - Joint swelling [Recovering/Resolving]

NARRATIVE: CASE EVENT DATE: 20190223
